FAERS Safety Report 8961195 (Version 8)
Quarter: 2013Q1

REPORT INFORMATION
  Report Type: Report from Study
  Country: JP (occurrence: JP)
  Receive Date: 20121212
  Receipt Date: 20130305
  Transmission Date: 20140127
  Serious: No
  Sender: FDA-Public Use
  Company Number: JP-GLAXOSMITHKLINE-B0850611A

PATIENT
  Age: 53 Year
  Sex: Female

DRUGS (4)
  1. VOTRIENT [Suspect]
     Indication: SOFT TISSUE CANCER
     Route: 048
     Dates: start: 201211
  2. VOTRIENT [Suspect]
     Indication: SOFT TISSUE CANCER
     Dosage: 600MG PER DAY
     Route: 048
     Dates: start: 20121205, end: 20130204
  3. CELECOX [Concomitant]
     Route: 048
  4. SELBEX [Concomitant]
     Route: 048

REACTIONS (9)
  - Hypertension [Recovered/Resolved]
  - Fatigue [Recovered/Resolved]
  - Decreased appetite [Recovered/Resolved]
  - Abdominal discomfort [Recovered/Resolved]
  - Thrombocytopenia [Recovered/Resolved]
  - Leukopenia [Recovering/Resolving]
  - Leukoderma [Recovered/Resolved]
  - Hair colour changes [Not Recovered/Not Resolved]
  - Nausea [Unknown]
